FAERS Safety Report 8028103-3 (Version None)
Quarter: 2012Q1

REPORT INFORMATION
  Report Type: 
  Country: None (occurrence: None)
  Receive Date: 20120106
  Receipt Date: 20111226
  Transmission Date: 20120608
  Serious: Yes (Hospitalization)
  Sender: FDA-Public Use
  Company Number: JP-UCBSA-048388

PATIENT
  Age: 41 Year
  Sex: Male

DRUGS (5)
  1. KEPPRA [Suspect]
     Route: 048
     Dates: start: 20090101
  2. TEGRETOL [Concomitant]
     Route: 048
  3. MYSTAN [Concomitant]
     Route: 048
  4. PHENYTOIN [Concomitant]
     Route: 048
  5. PHENYTOIN SODIUM CAP [Concomitant]
     Route: 048

REACTIONS (1)
  - BLISTER [None]
